FAERS Safety Report 9411797 (Version 4)
Quarter: 2013Q3

REPORT INFORMATION
  Report Type: Spontaneous
  Country: US (occurrence: None)
  Receive Date: 20130502
  Receipt Date: 20130815
  Transmission Date: 20140515
  Serious: Yes (Hospitalization, Other)
  Sender: FDA-Public Use
  Company Number: ADR-2013-00640

PATIENT
  Age: 16 Year
  Sex: Male

DRUGS (2)
  1. LIORESAL [Suspect]
     Indication: MUSCLE SPASTICITY
     Dosage: 500 MCG/DAY
  2. BACLOFEN [Concomitant]

REACTIONS (7)
  - Drug withdrawal syndrome [None]
  - Muscle spasticity [None]
  - Condition aggravated [None]
  - Device leakage [None]
  - Muscle twitching [None]
  - Implant site calcification [None]
  - Device breakage [None]
